FAERS Safety Report 7867092-9 (Version None)
Quarter: 2011Q4

REPORT INFORMATION
  Report Type: 
  Country: None (occurrence: None)
  Receive Date: 20111028
  Receipt Date: 20111021
  Transmission Date: 20120403
  Serious: Yes (Hospitalization, Other)
  Sender: FDA-Public Use
  Company Number: US-BRISTOL-MYERS SQUIBB COMPANY-13784186

PATIENT
  Age: 70 Year
  Sex: Male
  Weight: 101 kg

DRUGS (2)
  1. CETUXIMAB [Suspect]
     Indication: HEAD AND NECK CANCER
     Dosage: INT ON 07MAY07
     Dates: start: 20070507
  2. CISPLATIN [Suspect]
     Indication: HEAD AND NECK CANCER
     Dosage: INT ON 23MAR07
     Dates: start: 20070423

REACTIONS (8)
  - DERMATITIS ACNEIFORM [None]
  - DECREASED APPETITE [None]
  - FATIGUE [None]
  - DYSPNOEA [None]
  - ANGIOPATHY [None]
  - WEIGHT DECREASED [None]
  - DYSPHAGIA [None]
  - DIARRHOEA [None]
